FAERS Safety Report 6801420-8 (Version None)
Quarter: 2010Q2

REPORT INFORMATION
  Report Type: 
  Country: None (occurrence: None)
  Receive Date: 20100629
  Receipt Date: 20100621
  Transmission Date: 20101027
  Serious: Yes (Other)
  Sender: FDA-Public Use
  Company Number: B0659372A

PATIENT
  Sex: Male

DRUGS (4)
  1. SERETIDE [Suspect]
     Indication: ASTHMA
     Dosage: 500MCG PER DAY
     Route: 055
     Dates: start: 20071218
  2. FLUTIDE DISKUS [Suspect]
     Indication: DRUG USE FOR UNKNOWN INDICATION
     Dosage: 1BLS TWICE PER DAY
     Route: 055
     Dates: start: 20070612, end: 20071218
  3. MEPTIN AIR [Concomitant]
     Indication: ASTHMA
     Route: 055
  4. SINGULAIR [Concomitant]
     Indication: ASTHMA
     Route: 055

REACTIONS (5)
  - ASTHMA [None]
  - DENTAL CARIES [None]
  - NASOPHARYNGITIS [None]
  - TOOTH FRACTURE [None]
  - TOOTH INJURY [None]
